FAERS Safety Report 16872847 (Version 1)
Quarter: 2019Q4

REPORT INFORMATION
  Report Type: Report from Study
  Country: JP (occurrence: JP)
  Receive Date: 20191001
  Receipt Date: 20191001
  Transmission Date: 20200122
  Serious: Yes (Other)
  Sender: FDA-Public Use
  Company Number: JP-TEVA-2019-JP-1115442

PATIENT
  Sex: Male

DRUGS (5)
  1. PREDNISOLONE. [Suspect]
     Active Substance: PREDNISOLONE
     Dosage: TAPERED WEEKLY TO AN UNSPECIFIED DOSE BY POST-OPERATIVE WEEK 5 AND THEN SWITCHED TO ALTERNATE-DAY...
     Route: 048
  2. PREDNISOLONE. [Suspect]
     Active Substance: PREDNISOLONE
     Dosage: ON POST-OPERATIVE DAYS 2-7
     Route: 048
  3. PREDNISOLONE. [Suspect]
     Active Substance: PREDNISOLONE
     Indication: IMMUNOSUPPRESSANT DRUG THERAPY
     Dosage: 60 MG/M2 DAILY; ON POST-OPERATIVE DAY 1
     Route: 048
  4. TACROLIMUS. [Suspect]
     Active Substance: TACROLIMUS
     Indication: IMMUNOSUPPRESSANT DRUG THERAPY
     Dosage: 0.15 MG/KG/DOSE EVERY 12 HOURS WITH A TARGET TROUGH LEVEL OF 10-12 MICROG/L FOR THE FIRST 1-2 MON...
     Route: 048
  5. MYCOPHENOLATE-MOFETIL [Suspect]
     Active Substance: MYCOPHENOLATE MOFETIL
     Indication: IMMUNOSUPPRESSANT DRUG THERAPY
     Dosage: 1200 MG/M2 DAILY; MAXIMUM DOSE 2G DAILY
     Route: 065

REACTIONS (2)
  - Polyomavirus-associated nephropathy [Not Recovered/Not Resolved]
  - BK virus infection [Not Recovered/Not Resolved]
